FAERS Safety Report 9366550 (Version 1)
Quarter: 2013Q2

REPORT INFORMATION
  Report Type: Spontaneous
  Country: US (occurrence: US)
  Receive Date: 20130625
  Receipt Date: 20130625
  Transmission Date: 20140414
  Serious: No
  Sender: FDA-Public Use
  Company Number: US-009507513-1306USA004424

PATIENT
  Age: 36 Year
  Sex: Female

DRUGS (1)
  1. IMPLANON [Suspect]
     Indication: CONTRACEPTION
     Dosage: 1 DF, STRENGTH:68
     Route: 059
     Dates: start: 201212, end: 20130603

REACTIONS (2)
  - Mood swings [Recovering/Resolving]
  - Depression [Recovering/Resolving]
